FAERS Safety Report 22074948 (Version 1)
Quarter: 2023Q1

REPORT INFORMATION
  Report Type: Report from Study
  Country: CL (occurrence: CL)
  Receive Date: 20230308
  Receipt Date: 20230308
  Transmission Date: 20230417
  Serious: Yes (Other)
  Sender: FDA-Public Use
  Company Number: CL-002147023-NVSC2023CL050170

PATIENT
  Age: 12 Year
  Sex: Male
  Weight: 29 kg

DRUGS (1)
  1. OMNITROPE [Suspect]
     Active Substance: SOMATROPIN
     Indication: Product used for unknown indication
     Dosage: 1.3 MG, QD
     Route: 058
     Dates: start: 20220901, end: 20230101

REACTIONS (1)
  - Growth retardation [Unknown]

NARRATIVE: CASE EVENT DATE: 20220901
